FAERS Safety Report 25713966 (Version 5)
Quarter: 2025Q4

REPORT INFORMATION
  Report Type: Report from Study
  Country: US (occurrence: US)
  Receive Date: 20250822
  Receipt Date: 20251211
  Transmission Date: 20260118
  Serious: Yes (Other)
  Sender: ABBVIE
  Company Number: US-ABBVIE-6425878

PATIENT
  Age: 58 Year
  Sex: Male

DRUGS (5)
  1. DIVALPROEX SODIUM [Suspect]
     Active Substance: DIVALPROEX SODIUM
     Indication: Seizure
     Dosage: 2 TABLET?DIVALPROEX SODIUM DR FORM STRENGTH :  500 MILLIGRAM
     Route: 048
     Dates: start: 20190328
  2. DIVALPROEX SODIUM [Suspect]
     Active Substance: DIVALPROEX SODIUM
     Indication: Seizure
     Dosage: 2 TABLET?DIVALPROEX SODIUM DR FORM STRENGTH :  500 MILLIGRAM
     Route: 048
     Dates: start: 20250818
  3. DIVALPROEX SODIUM [Suspect]
     Active Substance: DIVALPROEX SODIUM
     Indication: Seizure
     Route: 048
     Dates: start: 1989
  4. PRIMIDONE [Concomitant]
     Active Substance: PRIMIDONE
     Indication: Seizure
  5. DIVALPROEX SODIUM [Suspect]
     Active Substance: DIVALPROEX SODIUM
     Indication: Epilepsy
     Dosage: GENERIC
     Route: 065

REACTIONS (12)
  - Generalised tonic-clonic seizure [Unknown]
  - Balance disorder [Unknown]
  - Product packaging issue [Not Recovered/Not Resolved]
  - Product physical issue [Unknown]
  - Dizziness [Not Recovered/Not Resolved]
  - Incorrect dose administered [Unknown]
  - Visual impairment [Not Recovered/Not Resolved]
  - Drug ineffective [Not Recovered/Not Resolved]
  - Body height increased [Not Recovered/Not Resolved]
  - Spinal operation [Unknown]
  - Seizure [Unknown]
  - Vertigo positional [Not Recovered/Not Resolved]

NARRATIVE: CASE EVENT DATE: 20250701
